FAERS Safety Report 14278910 (Version 3)
Quarter: 2018Q1

REPORT INFORMATION
  Report Type: Report from Study
  Country: US (occurrence: US)
  Receive Date: 20171212
  Receipt Date: 20180214
  Transmission Date: 20180508
  Serious: Yes (Other)
  Sender: FDA-Public Use
  Company Number: US-PFIZER INC-2017521676

PATIENT

DRUGS (3)
  1. KETAMINE HCL [Suspect]
     Active Substance: KETAMINE HYDROCHLORIDE
     Dosage: MAXIMUM KETAMINE DOSE 0.2 MG/KG/HR CONTINUOUS INFUSION
     Route: 042
  2. KETAMINE HCL [Suspect]
     Active Substance: KETAMINE HYDROCHLORIDE
     Dosage: MEDIAN KETAMINE DOSE 0.17 MG/KG/HR CONTINUOUS INFUSION
     Route: 042
  3. KETAMINE HCL [Suspect]
     Active Substance: KETAMINE HYDROCHLORIDE
     Indication: SEDATION
     Dosage: UNK (BOLUS DOSE, MG)
     Route: 042

REACTIONS (1)
  - Ventricular tachycardia [Unknown]
